FAERS Safety Report 6237196-5 (Version None)
Quarter: 2009Q2

REPORT INFORMATION
  Report Type: 
  Country: None (occurrence: None)
  Receive Date: 20090619
  Receipt Date: 20090615
  Transmission Date: 20091009
  Serious: Yes (Hospitalization)
  Sender: FDA-Public Use
  Company Number: US-B.I. PHARMACEUTICALS,INC./RIDGEFIELD-2009-DE-04302GD

PATIENT
  Age: 44 Year
  Sex: Female

DRUGS (12)
  1. CLONIDINE [Suspect]
     Dosage: .2MG
  2. CLOZAPINE [Suspect]
     Indication: SCHIZOAFFECTIVE DISORDER BIPOLAR TYPE
     Dosage: 725MG
  3. HYDROXYZINE [Suspect]
     Dosage: 100MG
  4. DILTIAZEM [Suspect]
     Dosage: 360MG
  5. ENALAPRIL [Suspect]
     Dosage: 10MG
  6. IPRATROPIUM BROMIDE [Concomitant]
     Dosage: 8 PUFFS
     Route: 055
  7. DIVALPROEX SODIUM [Concomitant]
     Dosage: 3250MG
  8. DESMOPRESSIN ACETATE [Concomitant]
     Dosage: 0.01%, 2 SPRAYS TO EACH NOSTRIL
     Route: 045
  9. MULTI-VITAMIN [Concomitant]
  10. ASPIRIN [Concomitant]
     Dosage: 81MG
  11. ALBUTEROL [Concomitant]
     Dosage: 8 PUFFS
     Route: 055
  12. PSYLLIUM [Concomitant]
     Indication: CONSTIPATION
     Dosage: 7G

REACTIONS (6)
  - ABDOMINAL DISTENSION [None]
  - COLITIS [None]
  - CONFUSIONAL STATE [None]
  - INTESTINAL OBSTRUCTION [None]
  - SEPSIS [None]
  - VOMITING [None]
